FAERS Safety Report 6327608-0 (Version None)
Quarter: 2009Q3

REPORT INFORMATION
  Report Type: 
  Country: None (occurrence: None)
  Receive Date: 20090825
  Receipt Date: 20090810
  Transmission Date: 20100115
  Serious: Yes (Death, Other)
  Sender: FDA-Public Use
  Company Number: US-GENENTECH-288759

PATIENT

DRUGS (1)
  1. BEVACIZUMAB [Suspect]
     Indication: OVARIAN CANCER RECURRENT
     Route: 065

REACTIONS (3)
  - DEATH [None]
  - GASTROINTESTINAL FISTULA [None]
  - GASTROINTESTINAL PERFORATION [None]
